FAERS Safety Report 6333006-6 (Version None)
Quarter: 2009Q3

REPORT INFORMATION
  Report Type: 
  Country: None (occurrence: None)
  Receive Date: 20090828
  Receipt Date: 20090824
  Transmission Date: 20100115
  Serious: Yes (Death, Other)
  Sender: FDA-Public Use
  Company Number: PHEH2009US07901

PATIENT
  Sex: Female
  Weight: 94.8 kg

DRUGS (10)
  1. EXJADE [Suspect]
     Indication: MYELODYSPLASTIC SYNDROME
     Dosage: 1500 MG, QD
     Route: 048
     Dates: start: 20090622, end: 20090721
  2. EXJADE [Suspect]
     Indication: IRON OVERLOAD
  3. EXJADE [Suspect]
     Indication: BLOOD PRODUCT TRANSFUSION DEPENDENT
  4. LISINOPRIL [Concomitant]
  5. NEURONTIN [Concomitant]
     Dosage: 300 MG, 1-  QAM, 2 @ HS
  6. COREG [Concomitant]
     Dosage: 3.125 MG, BID
  7. LACTOBACILLUS [Concomitant]
     Dosage: UNK
  8. NOVOLIN R [Concomitant]
     Dosage: 40 U, UNK
     Route: 058
  9. ZOLOFT [Concomitant]
     Dosage: 100 MG, UNK
  10. PRILOSEC [Concomitant]
     Dosage: 20 MG, UNK

REACTIONS (5)
  - BLOOD CREATININE INCREASED [None]
  - BLOOD UREA INCREASED [None]
  - CARDIAC FAILURE CONGESTIVE [None]
  - DEHYDRATION [None]
  - RENAL FAILURE [None]
